FAERS Safety Report 11688804 (Version 3)
Quarter: 2016Q1

REPORT INFORMATION
  Report Type: Report from Study
  Country: US (occurrence: US)
  Receive Date: 20151102
  Receipt Date: 20160102
  Transmission Date: 20160525
  Serious: Yes (Other)
  Sender: FDA-Public Use
  Company Number: US-AMGEN-USASP2015114182

PATIENT
  Age: 66 Year
  Sex: Male
  Weight: 99.77 kg

DRUGS (23)
  1. PREDNISONE. [Concomitant]
     Active Substance: PREDNISONE
     Dosage: 01 MG, TID
  2. OXYCODONE [Concomitant]
     Active Substance: OXYCODONE
     Dosage: 40 MG, AS NECESSARY
  3. FLEXERIL [Concomitant]
     Active Substance: CYCLOBENZAPRINE HYDROCHLORIDE
     Dosage: UNK, QHS, (EVERY NIGHT )
     Dates: start: 20151015
  4. FLEXERIL [Concomitant]
     Active Substance: CYCLOBENZAPRINE HYDROCHLORIDE
     Dosage: UNK, AS NECESSARY
     Dates: start: 20151207
  5. VITAMIN D [Concomitant]
     Active Substance: CHOLECALCIFEROL
     Dosage: 5000 IU, QD
     Dates: start: 20150701
  6. ENBREL [Suspect]
     Active Substance: ETANERCEPT
     Indication: RHEUMATOID ARTHRITIS
     Dosage: 50 MG, QWK
     Route: 058
     Dates: start: 20150720, end: 20151023
  7. COLCRYS [Concomitant]
     Active Substance: COLCHICINE
     Dosage: 1.8 MG, QD
  8. METHADONE [Concomitant]
     Active Substance: METHADONE HYDROCHLORIDE
     Dosage: 05 MG, TID
     Dates: start: 20150701
  9. KCL [Concomitant]
     Active Substance: POTASSIUM CHLORIDE
     Dosage: 10 MG, QD
  10. FLEXERIL [Concomitant]
     Active Substance: CYCLOBENZAPRINE HYDROCHLORIDE
     Dosage: UNK UNK, BID
     Dates: start: 20150701
  11. NITRO                              /00003201/ [Concomitant]
     Dosage: 0.4 MG, AS NECESSARY
  12. COREG [Concomitant]
     Active Substance: CARVEDILOL
     Dosage: 12.5 MG, BID
  13. ASA [Concomitant]
     Active Substance: ASPIRIN
     Dosage: 81 MG, QD
  14. MG [Concomitant]
     Active Substance: MAGNESIUM
     Dosage: 400 MG, QD
  15. LASIX [Concomitant]
     Active Substance: FUROSEMIDE
     Dosage: 40 MG, QD
  16. PROTONIX                           /00661201/ [Concomitant]
     Active Substance: OMEPRAZOLE
     Dosage: 40 MG, QD
  17. CLONIDINE. [Concomitant]
     Active Substance: CLONIDINE
     Dosage: 0.2 MG, AS NECESSARY (DAILY)
     Dates: start: 20150701
  18. B COMPLEX                          /00322001/ [Concomitant]
     Dosage: UNK UNK, QD
     Dates: start: 20150701
  19. OSTEO BI-FLEX                      /01431201/ [Concomitant]
     Dosage: UNK UNK, BID (2 QD)
     Dates: start: 20150701
  20. KLONOPIN [Concomitant]
     Active Substance: CLONAZEPAM
     Dosage: 0.5 MG, UNK
     Dates: start: 20150701
  21. TURMERIC                           /01079601/ [Concomitant]
     Active Substance: TURMERIC
     Dosage: UNK UNK, QD
     Dates: start: 20150701
  22. TORSEMIDE. [Concomitant]
     Active Substance: TORSEMIDE
     Dosage: 20 MG, AS NECESSARY (QD)
  23. COENZYME Q10 [Concomitant]
     Active Substance: UBIDECARENONE

REACTIONS (4)
  - Cardiac failure congestive [Recovering/Resolving]
  - Dyspnoea [Recovered/Resolved]
  - Dyspnoea exertional [Recovered/Resolved]
  - Fluid retention [Recovering/Resolving]

NARRATIVE: CASE EVENT DATE: 20150920
